FAERS Safety Report 20791976 (Version 1)
Quarter: 2022Q2

REPORT INFORMATION
  Report Type: Spontaneous
  Country: US (occurrence: US)
  Receive Date: 20220505
  Receipt Date: 20220505
  Transmission Date: 20220720
  Serious: No
  Sender: FDA-Public Use
  Company Number: US-BRISTOL-MYERS SQUIBB COMPANY-2022-030188

PATIENT
  Age: 59 Year
  Sex: Male

DRUGS (1)
  1. NIVOLUMAB [Suspect]
     Active Substance: NIVOLUMAB
     Indication: Metastatic malignant melanoma
     Dosage: 4 CYCLES
     Route: 065
     Dates: start: 202004

REACTIONS (4)
  - Dysuria [Unknown]
  - Sterile pyuria [Unknown]
  - Conjunctivitis [Unknown]
  - Arthritis [Unknown]
